FAERS Safety Report 10695943 (Version 2)
Quarter: 2015Q1

REPORT INFORMATION
  Report Type: Spontaneous
  Country: PL (occurrence: None)
  Receive Date: 20150105
  Receipt Date: 20150126
  Transmission Date: 20150721
  Serious: Yes (Hospitalization)
  Sender: FDA-Public Use
  Company Number: KAD201412-001752

PATIENT
  Age: 52 Year
  Sex: Male

DRUGS (4)
  1. PROPRANOLOL [Concomitant]
     Active Substance: PROPRANOLOL\PROPRANOLOL HYDROCHLORIDE
  2. CYCLONAMINE [Concomitant]
     Active Substance: ETHAMSYLATE
  3. RIBAVIRIN (RIBAVIRIN) [Suspect]
     Active Substance: RIBAVIRIN
     Indication: HEPATITIS C
     Dosage: 1200 MG/24 H, ORAL
     Route: 048
     Dates: start: 201110
  4. PEG INTERFERON ALFA 2A [Suspect]
     Active Substance: PEGINTERFERON ALFA-2A
     Indication: HEPATITIS C
     Dosage: 180 MCG ONCE WEEKLY, SUBCUTANEOUS?
     Route: 058
     Dates: start: 201110

REACTIONS (2)
  - Skin lesion [None]
  - Drug reaction with eosinophilia and systemic symptoms [None]
